FAERS Safety Report 9410574 (Version 1)
Quarter: 2013Q4

REPORT INFORMATION
  Report Type: Spontaneous
  Country: US (occurrence: None)
  Receive Date: 20130718
  Receipt Date: 20130718
  Transmission Date: 20140711
  Serious: Yes (Hospitalization)
  Sender: FDA-Public Use
  Company Number: None

PATIENT
  Age: 56 Year
  Sex: Female
  Weight: 85.7 kg

DRUGS (5)
  1. DOXORUBICIN [Suspect]
     Indication: BREAST CANCER
     Dosage: 60MG/M2 IV EVERY 21DAYS
     Route: 042
     Dates: start: 20120416, end: 20120508
  2. CYCLOPHOSPHAMIDE [Suspect]
     Indication: BREAST CANCER
     Dosage: 60MG/M2 IV EVERY 21DAYS
     Route: 042
     Dates: start: 20120416, end: 20120508
  3. HCTZ [Concomitant]
  4. LISINOPRIL [Concomitant]
  5. AMLODIPINE [Concomitant]

REACTIONS (4)
  - Dizziness [None]
  - Dehydration [None]
  - Hypokalaemia [None]
  - Hypotension [None]
